FAERS Safety Report 7386508-8 (Version None)
Quarter: 2011Q1

REPORT INFORMATION
  Report Type: 
  Country: None (occurrence: None)
  Receive Date: 20110331
  Receipt Date: 20110324
  Transmission Date: 20110831
  Serious: Yes (Hospitalization, Other)
  Sender: FDA-Public Use
  Company Number: FR-GENZYME-CAMP-1001488

PATIENT
  Sex: Male

DRUGS (11)
  1. ALDACTAZINE [Concomitant]
     Indication: PRODUCT USED FOR UNKNOWN INDICATION
     Route: 065
  2. ROVALCYTE [Concomitant]
     Indication: PRODUCT USED FOR UNKNOWN INDICATION
     Dosage: 1 PER DAY
     Route: 065
  3. CAMPATH [Suspect]
     Indication: CHRONIC LYMPHOCYTIC LEUKAEMIA
     Dosage: 30 MG, 3X/W
     Route: 042
     Dates: start: 20101011, end: 20101206
  4. ZELITREX [Concomitant]
     Indication: PRODUCT USED FOR UNKNOWN INDICATION
     Route: 065
  5. ZITHROMAX [Suspect]
     Indication: INFECTION
     Dosage: UNK
     Route: 048
     Dates: start: 20101124, end: 20101202
  6. INIPOMP [Concomitant]
     Indication: PRODUCT USED FOR UNKNOWN INDICATION
     Route: 065
  7. NEORECORMON [Concomitant]
     Indication: PRODUCT USED FOR UNKNOWN INDICATION
     Dosage: UNK
     Route: 065
     Dates: start: 20101115
  8. DISULONE [Concomitant]
     Indication: PRODUCT USED FOR UNKNOWN INDICATION
     Route: 065
  9. CAMPATH [Suspect]
     Dosage: UNK
     Route: 042
     Dates: start: 20110103, end: 20110121
  10. BACTRIM [Suspect]
     Indication: PRODUCT USED FOR UNKNOWN INDICATION
     Dosage: 1 TABLET, 3X/W
     Route: 048
     Dates: start: 20101011, end: 20101206
  11. SPECIAFOLDINE [Concomitant]
     Indication: PRODUCT USED FOR UNKNOWN INDICATION
     Route: 065

REACTIONS (4)
  - LYMPHADENOPATHY [None]
  - FACE OEDEMA [None]
  - EOSINOPHILIA [None]
  - RASH MACULO-PAPULAR [None]
